FAERS Safety Report 5929195-5 (Version None)
Quarter: 2008Q4

REPORT INFORMATION
  Report Type: 
  Country: None (occurrence: None)
  Receive Date: 20081024
  Receipt Date: 20081014
  Transmission Date: 20090506
  Serious: Yes (Other)
  Sender: FDA-Public Use
  Company Number: US-WYE-H06392108

PATIENT
  Sex: Female
  Weight: 60.38 kg

DRUGS (2)
  1. PRISTIQ [Suspect]
     Indication: DEPRESSION
     Dosage: 50 MG EVERY 1 TOT
     Route: 048
     Dates: start: 20081013, end: 20081013
  2. ESCITALOPRAM OXALATE [Concomitant]
     Indication: DEPRESSION
     Dosage: 10 MG, FREQUENCY UNKNOWN

REACTIONS (7)
  - ANXIETY [None]
  - BLINDNESS TRANSIENT [None]
  - EYE DISORDER [None]
  - EYE MOVEMENT DISORDER [None]
  - INSOMNIA [None]
  - MIOSIS [None]
  - TREMOR [None]
